FAERS Safety Report 4706458-2 (Version None)
Quarter: 2005Q3

REPORT INFORMATION
  Report Type: 
  Country: None (occurrence: None)
  Receive Date: 20050705
  Receipt Date: 20050701
  Transmission Date: 20060218
  Serious: Yes (Hospitalization)
  Sender: FDA-Public Use
  Company Number: US-GLAXOSMITHKLINE-A0564826A

PATIENT
  Age: 75 Year
  Sex: Male

DRUGS (5)
  1. AVODART [Suspect]
     Indication: BENIGN PROSTATIC HYPERPLASIA
     Dosage: .5MG PER DAY
     Route: 048
     Dates: start: 20040101
  2. FLOMAX [Concomitant]
  3. TEGRETOL [Concomitant]
  4. SAW PALMETTO [Concomitant]
  5. STEROIDS [Concomitant]

REACTIONS (7)
  - ANAEMIA [None]
  - AUTOIMMUNE DISORDER [None]
  - CHEST WALL PAIN [None]
  - DEEP VEIN THROMBOSIS [None]
  - LETHARGY [None]
  - PHLEBITIS [None]
  - RED BLOOD CELL SEDIMENTATION RATE INCREASED [None]
